FAERS Safety Report 8590985-4 (Version None)
Quarter: 2012Q3

REPORT INFORMATION
  Report Type: 
  Country: None (occurrence: None)
  Receive Date: 20120813
  Receipt Date: 20120725
  Transmission Date: 20120928
  Serious: No
  Sender: FDA-Public Use
  Company Number: US-ASTRAZENECA-2012SE53200

PATIENT
  Age: 58 Year
  Sex: Female

DRUGS (5)
  1. SPIRIVA [Concomitant]
     Dosage: IN AFTERNOON
  2. SEROQUEL [Suspect]
     Indication: BIPOLAR DISORDER
     Route: 048
  3. SYMBICORT [Suspect]
     Indication: CHRONIC OBSTRUCTIVE PULMONARY DISEASE
     Dosage: 160/4.5 MGS ONE PUFF IN THE MORNING ONE PUFF IN THE EVENING
     Route: 055
  4. KLONOPIN [Concomitant]
  5. PROZAC [Concomitant]

REACTIONS (2)
  - CHRONIC OBSTRUCTIVE PULMONARY DISEASE [None]
  - OFF LABEL USE [None]
